FAERS Safety Report 23734710 (Version 1)
Quarter: 2024Q2

REPORT INFORMATION
  Report Type: Spontaneous
  Country: GB (occurrence: GB)
  Receive Date: 20240412
  Receipt Date: 20240412
  Transmission Date: 20240716
  Serious: Yes (Other)
  Sender: FDA-Public Use
  Company Number: None

PATIENT
  Age: 58 Year
  Sex: Male
  Weight: 83 kg

DRUGS (10)
  1. PROTOPIC [Suspect]
     Active Substance: TACROLIMUS
     Indication: Sunburn
     Dosage: APPLY TWICE DAILY FOR 4 WEEKS THEN TWICE WEEKLY
     Dates: start: 20240305, end: 20240314
  2. PROTOPIC [Suspect]
     Active Substance: TACROLIMUS
     Indication: Sunburn
     Dosage: APPLY TWICE DAILY FOR 4 WEEKS THEN TWICE WEEKLY
     Dates: start: 20240305, end: 20240314
  3. FLUCLOXACILLIN [Concomitant]
     Active Substance: FLUCLOXACILLIN
     Indication: Product used for unknown indication
     Dates: start: 20240108, end: 20240115
  4. CLOBETASONE BUTYRATE [Concomitant]
     Active Substance: CLOBETASONE BUTYRATE
     Indication: Product used for unknown indication
     Dosage: APPLY ONCE DAILY TO AFFECTED AREAS FOR 7 DAYS THEN REDUCE TO TWICE WEEKLY FOR 4 WEEKS...
     Dates: start: 20240129, end: 20240226
  5. DERMOL [Concomitant]
     Active Substance: BENZALKONIUM CHLORIDE\CHLORHEXIDINE HYDROCHLORIDE\ISOPROPYL MYRISTATE\PARAFFIN
     Indication: Product used for unknown indication
     Dosage: USE AS DIRECTED
     Dates: start: 20240108, end: 20240110
  6. KETOCONAZOLE [Concomitant]
     Active Substance: KETOCONAZOLE
     Indication: Product used for unknown indication
     Dosage: USE AS A BODY WASH.
     Dates: start: 20240223, end: 20240322
  7. CETRABEN EMOLLIENT CREAM [Concomitant]
     Indication: Product used for unknown indication
     Dosage: APPLY TO THE AFFECTED AREAS OF SKIN 4 TO 6 TIMES A DAY
     Dates: start: 20240223, end: 20240322
  8. ISOPROPYL MYRISTATE\MINERAL OIL [Concomitant]
     Active Substance: ISOPROPYL MYRISTATE\MINERAL OIL
     Indication: Product used for unknown indication
     Dosage: USE AS NEEDED
     Dates: start: 20160324
  9. AMLODIPINE [Concomitant]
     Active Substance: AMLODIPINE BESYLATE
     Indication: Product used for unknown indication
     Dates: start: 20231211
  10. BETAMETHASONE VALERATE [Concomitant]
     Active Substance: BETAMETHASONE VALERATE
     Indication: Product used for unknown indication
     Dosage: USE AS DIRECTED BD SPARINGLY
     Dates: start: 20240223, end: 20240308

REACTIONS (2)
  - Erythema [Recovering/Resolving]
  - Pruritus [Unknown]
